FAERS Safety Report 23999163 (Version 3)
Quarter: 2024Q3

REPORT INFORMATION
  Report Type: Spontaneous
  Country: FR (occurrence: FR)
  Receive Date: 20240621
  Receipt Date: 20240809
  Transmission Date: 20241016
  Serious: Yes (Death)
  Sender: AMGEN
  Company Number: None

PATIENT
  Age: 67 Year
  Sex: Female
  Weight: 58 kg

DRUGS (10)
  1. KYPROLIS [Suspect]
     Active Substance: CARFILZOMIB
     Indication: Plasma cell myeloma
     Dosage: UNK
     Route: 040
     Dates: start: 201811, end: 202111
  2. TECLISTAMAB [Suspect]
     Active Substance: TECLISTAMAB
     Indication: Plasma cell myeloma
     Dosage: 70 MILLIGRAM, QWK
     Route: 058
     Dates: start: 20240422, end: 20240429
  3. TECLISTAMAB [Suspect]
     Active Substance: TECLISTAMAB
     Dosage: ACCORDING TO PROTOCOL
     Route: 058
     Dates: start: 20231127, end: 202312
  4. TECLISTAMAB [Suspect]
     Active Substance: TECLISTAMAB
     Dosage: 80 MILLIGRAM, QWK
     Route: 058
     Dates: start: 20240301, end: 20240415
  5. TECLISTAMAB [Suspect]
     Active Substance: TECLISTAMAB
     Dosage: 80 MILLIGRAM, QWK
     Route: 058
     Dates: start: 20240102, end: 20240206
  6. TECLISTAMAB [Suspect]
     Active Substance: TECLISTAMAB
     Dosage: 82 MILLIGRAM, QWK
     Route: 058
     Dates: start: 20231221, end: 20231226
  7. POMALIDOMIDE [Suspect]
     Active Substance: POMALIDOMIDE
     Indication: Plasma cell myeloma
     Dosage: UNK
     Route: 048
     Dates: start: 202204, end: 202310
  8. DEXAMETHASONE [Suspect]
     Active Substance: DEXAMETHASONE
     Indication: Plasma cell myeloma
     Dosage: UNK
     Route: 065
     Dates: start: 201811, end: 202310
  9. LENALIDOMIDE [Suspect]
     Active Substance: LENALIDOMIDE
     Indication: Plasma cell myeloma
     Dosage: UNK
     Route: 048
     Dates: start: 201811, end: 202111
  10. DARZALEX [Suspect]
     Active Substance: DARATUMUMAB
     Indication: Plasma cell myeloma
     Dosage: UNK
     Route: 040
     Dates: start: 202204, end: 202310

REACTIONS (2)
  - Condition aggravated [Fatal]
  - Squamous cell carcinoma [Fatal]

NARRATIVE: CASE EVENT DATE: 20230801
